FAERS Safety Report 7724972-2 (Version None)
Quarter: 2011Q3

REPORT INFORMATION
  Report Type: 
  Country: None (occurrence: None)
  Receive Date: 20110901
  Receipt Date: 20110826
  Transmission Date: 20111222
  Serious: Yes (Death, Other)
  Sender: FDA-Public Use
  Company Number: BE-ABBOTT-11P-013-0850286-00

PATIENT
  Sex: Male
  Weight: 62 kg

DRUGS (3)
  1. BICALUTAMIDE [Concomitant]
     Indication: PRODUCT USED FOR UNKNOWN INDICATION
     Dosage: 50 MG X 3
     Dates: start: 20050925
  2. TAXOTERE [Concomitant]
     Indication: PRODUCT USED FOR UNKNOWN INDICATION
     Dates: start: 20070105
  3. LEUPROLIDE ACETATE [Suspect]
     Indication: PRODUCT USED FOR UNKNOWN INDICATION
     Dates: start: 20050930, end: 20061201

REACTIONS (3)
  - DRUG EFFECT DECREASED [None]
  - PROSTATE CANCER [None]
  - METASTASES TO BONE [None]
